FAERS Safety Report 8128653 (Version 5)
Quarter: 2013Q4

REPORT INFORMATION
  Report Type: Spontaneous
  Country: JP (occurrence: JP)
  Receive Date: 20110909
  Receipt Date: 20131002
  Transmission Date: 20140711
  Serious: Yes (Congenital Anomaly)
  Sender: FDA-Public Use
  Company Number: PHHY2011JP77952

PATIENT
  Sex: Male
  Weight: 3 kg

DRUGS (3)
  1. FEMARA [Suspect]
     Dosage: 5 MG, QD
     Route: 064
  2. GONADOTROPINS [Concomitant]
     Dosage: 150 IU, UNK
     Route: 064
  3. CETROTIDE [Concomitant]
     Dosage: 0.5 MG, UNK
     Route: 064

REACTIONS (2)
  - Polydactyly [Unknown]
  - Foetal exposure timing unspecified [Unknown]
